FAERS Safety Report 5596511-6 (Version None)
Quarter: 2008Q1

REPORT INFORMATION
  Report Type: 
  Country: None (occurrence: None)
  Receive Date: 20080118
  Receipt Date: 20080107
  Transmission Date: 20080703
  Serious: Yes (Hospitalization, Other)
  Sender: FDA-Public Use
  Company Number: US-PFIZER INC-2008002082

PATIENT
  Age: 75 Year
  Sex: Male
  Weight: 65.909 kg

DRUGS (6)
  1. DILANTIN [Suspect]
     Indication: PETIT MAL EPILEPSY
  2. TEGRETOL [Concomitant]
  3. ALTACE [Concomitant]
  4. COREG [Concomitant]
  5. AVODART [Concomitant]
  6. PRAVASTATIN [Concomitant]

REACTIONS (3)
  - AMNESIA [None]
  - ANTICONVULSANT DRUG LEVEL ABNORMAL [None]
  - DIZZINESS [None]
